FAERS Safety Report 5425937-6 (Version None)
Quarter: 2007Q3

REPORT INFORMATION
  Report Type: 
  Country: None (occurrence: None)
  Receive Date: 20070827
  Receipt Date: 20070816
  Transmission Date: 20080115
  Serious: Yes (Other)
  Sender: FDA-Public Use
  Company Number: US-JNJFOC-20070400679

PATIENT
  Sex: Female

DRUGS (8)
  1. REMICADE [Suspect]
     Route: 042
     Dates: start: 20060701
  2. REMICADE [Suspect]
     Route: 042
     Dates: start: 20060701
  3. REMICADE [Suspect]
     Indication: PSORIASIS
     Route: 042
     Dates: start: 20060701
  4. CYCLOSPORINE [Suspect]
     Indication: PSORIASIS
  5. FLUOCINONIDE [Concomitant]
     Indication: PSORIASIS
  6. DOVONEX [Concomitant]
     Indication: PSORIASIS
  7. CETAPHIL LOTION [Concomitant]
  8. CIPRO [Concomitant]
     Indication: INFECTION

REACTIONS (7)
  - ABDOMINAL PAIN [None]
  - HELICOBACTER INFECTION [None]
  - PAPILLOEDEMA [None]
  - RASH [None]
  - STAPHYLOCOCCAL INFECTION [None]
  - URINARY TRACT INFECTION [None]
  - VISUAL DISTURBANCE [None]
